FAERS Safety Report 5007733-7 (Version None)
Quarter: 2006Q2

REPORT INFORMATION
  Report Type: 
  Country: None (occurrence: None)
  Receive Date: 20060522
  Receipt Date: 20060217
  Transmission Date: 20061013
  Serious: Yes (Other)
  Sender: FDA-Public Use
  Company Number: PHRM2006FR00835

PATIENT
  Age: 85 Year
  Sex: Male
  Weight: 70 kg

DRUGS (1)
  1. LAMISIL [Suspect]
     Indication: NAIL TINEA
     Dosage: 250 MG DAILY
     Route: 048
     Dates: start: 20051220, end: 20060217

REACTIONS (4)
  - BLISTER [None]
  - PAIN [None]
  - PURPURA [None]
  - WOUND NECROSIS [None]
